FAERS Safety Report 10869842 (Version 2)
Quarter: 2015Q2

REPORT INFORMATION
  Report Type: Spontaneous
  Country: US (occurrence: None)
  Receive Date: 20150223
  Receipt Date: 20150402
  Transmission Date: 20150821
  Serious: Yes (Hospitalization)
  Sender: FDA-Public Use
  Company Number: ABR_02055_2015

PATIENT
  Age: 69 Year
  Sex: Male

DRUGS (11)
  1. EDARBYCLOR [Suspect]
     Active Substance: AZILSARTAN KAMEDOXOMIL\CHLORTHALIDONE
     Indication: ESSENTIAL HYPERTENSION
     Dosage: [40/25 MG]
     Route: 048
     Dates: start: 20150206, end: 201502
  2. BUSPAR [Concomitant]
     Active Substance: BUSPIRONE HYDROCHLORIDE
  3. FAMOTIDINE. [Concomitant]
     Active Substance: FAMOTIDINE
  4. FERROUS SULFATE [Concomitant]
     Active Substance: FERROUS SULFATE\FERROUS SULFATE, DRIED
  5. XANAX [Concomitant]
     Active Substance: ALPRAZOLAM
  6. FISH OIL [Concomitant]
     Active Substance: FISH OIL
  7. AMIODARONE [Concomitant]
     Active Substance: AMIODARONE
  8. HYDROCODONE [Concomitant]
     Active Substance: HYDROCODONE
  9. LIPITOR [Concomitant]
     Active Substance: ATORVASTATIN CALCIUM
  10. COLACE [Concomitant]
     Active Substance: DOCUSATE SODIUM
  11. ASPIRIN. [Concomitant]
     Active Substance: ASPIRIN

REACTIONS (2)
  - Renal failure [None]
  - Cerebrovascular accident [None]

NARRATIVE: CASE EVENT DATE: 201502
